FAERS Safety Report 7805102-5 (Version None)
Quarter: 2011Q4

REPORT INFORMATION
  Report Type: 
  Country: None (occurrence: None)
  Receive Date: 20111010
  Receipt Date: 20110929
  Transmission Date: 20120403
  Serious: Yes (Other)
  Sender: FDA-Public Use
  Company Number: PHEH2011US05477

PATIENT
  Sex: Female

DRUGS (6)
  1. VITAMIN B COMPLEX CAP [Concomitant]
  2. HYDROCHLOROTHIAZIDE [Concomitant]
  3. MULTI-VITAMINS [Concomitant]
  4. AZOR [Concomitant]
  5. SANDOSTATIN LAR [Suspect]
     Indication: CARCINOID TUMOUR
     Dosage: 30 MG EVERY 3 WEEKS
  6. AVASTIN [Concomitant]
     Route: 042

REACTIONS (5)
  - INSOMNIA [None]
  - INJECTION SITE MASS [None]
  - SCIATICA [None]
  - INFECTION [None]
  - LIMB DISCOMFORT [None]
